FAERS Safety Report 6393785-9 (Version None)
Quarter: 2009Q4

REPORT INFORMATION
  Report Type: 
  Country: None (occurrence: None)
  Receive Date: 20091008
  Receipt Date: 20090930
  Transmission Date: 20100525
  Serious: Yes (Death, Hospitalization)
  Sender: FDA-Public Use
  Company Number: DE-MERCK-0910USA00479

PATIENT
  Age: 27 Year
  Sex: Male

DRUGS (3)
  1. DECADRON [Suspect]
     Indication: BACK PAIN
     Route: 048
  2. PIROXICAM [Suspect]
     Indication: BACK PAIN
     Route: 051
  3. DICLOFENAC [Suspect]
     Indication: BACK PAIN
     Route: 065

REACTIONS (1)
  - MULTI-ORGAN FAILURE [None]
